FAERS Safety Report 7222759-0 (Version None)
Quarter: 2011Q1

REPORT INFORMATION
  Report Type: 
  Country: None (occurrence: None)
  Receive Date: 20110106
  Receipt Date: 20110106
  Transmission Date: 20110831
  Serious: Yes (Disabling)
  Sender: FDA-Public Use
  Company Number: None

PATIENT
  Age: 77 Year
  Sex: Female
  Weight: 54.4316 kg

DRUGS (2)
  1. ZETIA [Suspect]
     Indication: BLOOD CHOLESTEROL INCREASED
     Dosage: 1 PILL 1 A DAY ORAL
     Route: 048
     Dates: start: 20100326, end: 20100606
  2. RESTASIS [Suspect]
     Indication: DRY EYE
     Dosage: 1 DROP EACH EYE ON A DAILY EYE
     Dates: start: 20100616, end: 20100617

REACTIONS (7)
  - DIZZINESS [None]
  - INNER EAR DISORDER [None]
  - ASTHENIA [None]
  - VISION BLURRED [None]
  - HYPERSENSITIVITY [None]
  - TREMOR [None]
  - GAIT DISTURBANCE [None]
